FAERS Safety Report 8101611-2 (Version None)
Quarter: 2012Q1

REPORT INFORMATION
  Report Type: 
  Country: None (occurrence: None)
  Receive Date: 20120129
  Receipt Date: 20111010
  Transmission Date: 20120608
  Serious: No
  Sender: FDA-Public Use
  Company Number: US-ABBOTT-11P-163-0863228-00

PATIENT
  Age: 47 Year
  Sex: Female

DRUGS (5)
  1. GABAPENTIN [Concomitant]
     Indication: PAIN
  2. HUMIRA [Suspect]
     Indication: CROHN'S DISEASE
     Dates: start: 20110701, end: 20110921
  3. HYDROCODONE BITARTRATE [Concomitant]
     Indication: BACK PAIN
     Dosage: 10/500
  4. HYDROCODONE BITARTRATE [Concomitant]
     Indication: ABDOMINAL PAIN
  5. METOCLOPRAMIDE [Concomitant]
     Indication: NAUSEA
     Dates: start: 20110801

REACTIONS (3)
  - OROPHARYNGEAL PAIN [None]
  - NECK PAIN [None]
  - NAUSEA [None]
